FAERS Safety Report 5656675-2 (Version None)
Quarter: 2008Q1

REPORT INFORMATION
  Report Type: 
  Country: None (occurrence: None)
  Receive Date: 20080310
  Receipt Date: 20080226
  Transmission Date: 20080703
  Serious: Yes (Hospitalization)
  Sender: FDA-Public Use
  Company Number: FR-TYCO HEALTHCARE/MALLINCKRODT-T200800332

PATIENT

DRUGS (1)
  1. HEXABRIX [Suspect]
     Indication: CORONARY ANGIOPLASTY
     Dosage: 120 ML, SINGLE
     Route: 013
     Dates: start: 20080117, end: 20080117

REACTIONS (3)
  - HYPOTENSION [None]
  - RASH ERYTHEMATOUS [None]
  - SINUS TACHYCARDIA [None]
